FAERS Safety Report 10036047 (Version 2)
Quarter: 2014Q2

REPORT INFORMATION
  Report Type: Spontaneous
  Country: US (occurrence: US)
  Receive Date: 20140325
  Receipt Date: 20140502
  Transmission Date: 20141212
  Serious: Yes (Hospitalization)
  Sender: FDA-Public Use
  Company Number: US-B.I. PHARMACEUTICALS,INC./RIDGEFIELD-2014-BI-12480BP

PATIENT
  Age: 85 Year
  Sex: Female
  Weight: 66.68 kg

DRUGS (19)
  1. PRADAXA [Suspect]
     Indication: ATRIAL FIBRILLATION
     Dosage: 300 MG
     Route: 048
     Dates: start: 20101218, end: 20110414
  2. ACETAMINOPHEN [Concomitant]
     Indication: PAIN
     Route: 048
  3. ACETAMINOPHEN [Concomitant]
     Indication: PYREXIA
  4. MAALOX [Concomitant]
     Indication: DYSPEPSIA
     Route: 048
  5. COMBIVENT [Concomitant]
     Indication: DYSPNOEA
     Route: 065
  6. BISACODYL [Concomitant]
     Indication: CONSTIPATION
     Route: 054
  7. CODEINE/GUAIFENESIN [Concomitant]
     Indication: COUGH
     Route: 048
  8. COLCHICINE [Concomitant]
     Indication: GOUT
     Route: 048
  9. FLONASE [Concomitant]
     Route: 045
  10. FUROSEMIDE [Concomitant]
     Dosage: 160 MG
     Route: 048
  11. LEVOTHYROXINE [Concomitant]
     Dosage: 125 MCG
     Route: 048
  12. LISINOPRIL [Concomitant]
     Dosage: 2.5 MG
     Route: 048
  13. MILK OF MAGNESIA [Concomitant]
     Indication: CONSTIPATION
     Route: 048
  14. MULTIVITAMIN WITH MINERALS [Concomitant]
     Route: 048
  15. NITROGLYCERIN [Concomitant]
     Indication: CHEST PAIN
     Route: 060
  16. POTASSIUM CHLORIDE [Concomitant]
     Dosage: 80 MEQ
     Route: 048
  17. PREDNISONE [Concomitant]
     Dosage: 8 MG
     Route: 048
  18. FLEETS ENEMA [Concomitant]
     Indication: CONSTIPATION
     Route: 065
  19. AMBIEN [Concomitant]
     Indication: INSOMNIA
     Dosage: 5 MG
     Route: 048

REACTIONS (3)
  - Upper gastrointestinal haemorrhage [Unknown]
  - Lower gastrointestinal haemorrhage [Unknown]
  - Haemorrhagic anaemia [Unknown]
